FAERS Safety Report 9886636 (Version 2)
Quarter: 2014Q1

REPORT INFORMATION
  Report Type: Spontaneous
  Country: US (occurrence: US)
  Receive Date: 20140210
  Receipt Date: 20140328
  Transmission Date: 20141002
  Serious: Yes (Other)
  Sender: FDA-Public Use
  Company Number: CHPA2014US002263

PATIENT
  Age: 77 Year
  Sex: Female

DRUGS (1)
  1. THERAFLU FLU AND SORE THROAT [Suspect]
     Indication: OROPHARYNGEAL PAIN
     Route: 048

REACTIONS (2)
  - Fibromyalgia [Not Recovered/Not Resolved]
  - Drug ineffective [Unknown]
